FAERS Safety Report 15450530 (Version 1)
Quarter: 2018Q4

REPORT INFORMATION
  Report Type: Spontaneous
  Country: US (occurrence: US)
  Receive Date: 20181001
  Receipt Date: 20181001
  Transmission Date: 20190204
  Serious: Yes (Other)
  Sender: FDA-Public Use
  Company Number: US-ASTRAZENECA-2018SF24860

PATIENT
  Sex: Male
  Weight: 124.7 kg

DRUGS (2)
  1. LISINOPRIL. [Suspect]
     Active Substance: LISINOPRIL
     Indication: HYPERTENSION
     Route: 048
  2. SYMBICORT [Suspect]
     Active Substance: BUDESONIDE\FORMOTEROL FUMARATE DIHYDRATE
     Indication: CHRONIC OBSTRUCTIVE PULMONARY DISEASE
     Dosage: 2 PUFFS IN THE MORNING 2 PUFFS IN THE EVENING
     Route: 055
     Dates: start: 2017

REACTIONS (3)
  - Visual impairment [Unknown]
  - Malaise [Unknown]
  - Pneumonitis [Unknown]

NARRATIVE: CASE EVENT DATE: 201807
